FAERS Safety Report 4607148-7 (Version None)
Quarter: 2005Q1

REPORT INFORMATION
  Report Type: 
  Country: None (occurrence: None)
  Receive Date: 20050309
  Receipt Date: 20050216
  Transmission Date: 20050727
  Serious: Yes (Other)
  Sender: FDA-Public Use
  Company Number: USA050291236

PATIENT
  Sex: Female

DRUGS (5)
  1. CYMBALTA [Suspect]
     Dosage: 30 MG
     Dates: start: 20050123, end: 20050213
  2. ZOMIG [Concomitant]
  3. AXERT [Concomitant]
  4. IMITREX [Concomitant]
  5. EXEDRIN MIGRAINE [Concomitant]

REACTIONS (2)
  - CONVULSION [None]
  - MIGRAINE [None]
